FAERS Safety Report 24050929 (Version 1)
Quarter: 2024Q3

REPORT INFORMATION
  Report Type: Report from Study
  Country: JP (occurrence: None)
  Receive Date: 20240704
  Receipt Date: 20240704
  Transmission Date: 20241017
  Serious: Yes (Hospitalization)
  Sender: ASTRAZENECA
  Company Number: 2024A147545

PATIENT
  Age: 58 Year
  Sex: Male

DRUGS (1)
  1. CILGAVIMAB\TIXAGEVIMAB [Suspect]
     Active Substance: CILGAVIMAB\TIXAGEVIMAB
     Indication: COVID-19 prophylaxis
     Dosage: 1.0DF ONCE/SINGLE ADMINISTRATION
     Route: 030

REACTIONS (3)
  - COVID-19 [Unknown]
  - COVID-19 pneumonia [Unknown]
  - Drug ineffective [Unknown]
